FAERS Safety Report 5564092-9 (Version None)
Quarter: 2007Q4

REPORT INFORMATION
  Report Type: 
  Country: None (occurrence: None)
  Receive Date: 20071217
  Receipt Date: 20071205
  Transmission Date: 20080405
  Serious: Yes (Hospitalization, Other)
  Sender: FDA-Public Use
  Company Number: JP-PFIZER INC-2007102857

PATIENT
  Age: 83 Year
  Sex: Male

DRUGS (12)
  1. HALCION [Suspect]
     Dosage: TEXT:PRN
     Route: 048
  2. ALDACTONE [Concomitant]
     Route: 048
  3. LASIX [Concomitant]
  4. VASOLAN [Concomitant]
  5. WARFARIN SODIUM [Concomitant]
     Route: 048
  6. SLOW-K [Concomitant]
     Route: 048
  7. ALENDRONATE SODIUM [Concomitant]
     Route: 048
  8. LACTEC [Concomitant]
     Route: 042
  9. ALFACALCIDOL [Concomitant]
     Route: 048
  10. NEUROTROPIN [Concomitant]
  11. MUCOSTA [Concomitant]
     Route: 048
  12. MILTAX [Concomitant]
     Route: 062

REACTIONS (2)
  - HOSPITALISATION [None]
  - INSULIN AUTOIMMUNE SYNDROME [None]
